FAERS Safety Report 4350926-2 (Version None)
Quarter: 2004Q2

REPORT INFORMATION
  Report Type: 
  Country: None (occurrence: None)
  Receive Date: 20040430
  Receipt Date: 20031029
  Transmission Date: 20050107
  Serious: Yes (Death)
  Sender: FDA-Public Use
  Company Number: US-GLAXOSMITHKLINE-B0313977A

PATIENT
  Age: 19 Year
  Sex: Female

DRUGS (4)
  1. LAMICTAL [Suspect]
     Route: 048
  2. WELLBUTRIN [Suspect]
     Route: 048
  3. CITALOPRAM [Suspect]
     Route: 048
  4. ACETAMINOPHEN+DEXTROMETH.HBR+DOXYL.SUCC+PSEUDOEPHED.HCL [Suspect]
     Route: 065

REACTIONS (5)
  - CARDIO-RESPIRATORY ARREST [None]
  - COMPLETED SUICIDE [None]
  - CONVULSION [None]
  - ELECTROCARDIOGRAM QRS COMPLEX PROLONGED [None]
  - HYPOTENSION [None]
